FAERS Safety Report 11021277 (Version 1)
Quarter: 2015Q2

REPORT INFORMATION
  Report Type: Spontaneous
  Country: CH (occurrence: CH)
  Receive Date: 20150413
  Receipt Date: 20150413
  Transmission Date: 20150821
  Serious: Yes (Hospitalization)
  Sender: FDA-Public Use
  Company Number: CH-PFIZER INC-2015123261

PATIENT
  Age: 66 Year
  Sex: Female

DRUGS (24)
  1. BEPANTHEN [Concomitant]
     Active Substance: DEXPANTHENOL
     Dosage: UNK
  2. PREDNISON [Concomitant]
     Active Substance: PREDNISONE
     Dosage: UNK
  3. REMERON [Suspect]
     Active Substance: MIRTAZAPINE
     Indication: DEPRESSION
     Dosage: 30 MG, UNK
     Route: 048
     Dates: start: 2013, end: 201407
  4. VALTREX [Concomitant]
     Active Substance: VALACYCLOVIR HYDROCHLORIDE
     Dosage: UNK
  5. CONCOR [Concomitant]
     Active Substance: BISOPROLOL FUMARATE
     Dosage: UNK
  6. CREON [Concomitant]
     Active Substance: PANCRELIPASE AMYLASE\PANCRELIPASE LIPASE\PANCRELIPASE PROTEASE
     Dosage: UNK
  7. SUPRADYN [Concomitant]
     Active Substance: ASCORBIC ACID\MINERALS\VITAMINS
     Dosage: UNK
  8. DIFLUCAN [Concomitant]
     Active Substance: FLUCONAZOLE
     Dosage: UNK
  9. LUBEX [Concomitant]
     Dosage: UNK
  10. METFORMIN [Concomitant]
     Active Substance: METFORMIN HYDROCHLORIDE
     Dosage: UNK
  11. KCL [Concomitant]
     Active Substance: POTASSIUM CHLORIDE
     Dosage: UNK
  12. MYFORTIC [Concomitant]
     Active Substance: MYCOPHENOLATE SODIUM
     Dosage: UNK
  13. LACRINORM [Concomitant]
     Active Substance: CARBOMER
     Dosage: UNK
  14. NOPIL [Concomitant]
     Active Substance: SULFAMETHOXAZOLE\TRIMETHOPRIM
     Dosage: UNK
  15. EXCIPIAL [Concomitant]
     Dosage: UNK
  16. CALCIMAGON [Concomitant]
     Active Substance: CALCIUM
     Dosage: UNK
  17. PROGRAF [Suspect]
     Active Substance: TACROLIMUS\TACROLIMUS ANHYDROUS
     Indication: CHRONIC GRAFT VERSUS HOST DISEASE
     Dosage: 1 MG, 2X/DAY
     Route: 048
     Dates: start: 201405
  18. MAGNESIUM [Concomitant]
     Active Substance: MAGNESIUM
     Dosage: UNK
  19. CRESTOR [Concomitant]
     Active Substance: ROSUVASTATIN CALCIUM
     Dosage: UNK
  20. OESTRO GYNADRON [Concomitant]
     Dosage: UNK
  21. PANTOZOL [Suspect]
     Active Substance: PANTOPRAZOLE SODIUM
     Indication: PROPHYLAXIS
     Dosage: 40 MG, DAILY
     Route: 048
     Dates: start: 201406, end: 201407
  22. URSOFALK [Concomitant]
     Active Substance: URSODIOL
     Dosage: UNK
  23. ELTROXIN [Concomitant]
     Active Substance: LEVOTHYROXINE
     Dosage: UNK
  24. XARELTO [Concomitant]
     Active Substance: RIVAROXABAN
     Dosage: UNK

REACTIONS (2)
  - Inappropriate antidiuretic hormone secretion [Recovered/Resolved]
  - Hyponatraemia [Recovered/Resolved]

NARRATIVE: CASE EVENT DATE: 201407
